FAERS Safety Report 4371018-2 (Version None)
Quarter: 2004Q2

REPORT INFORMATION
  Report Type: 
  Country: None (occurrence: None)
  Receive Date: 20040601
  Receipt Date: 20040521
  Transmission Date: 20050107
  Serious: Yes (Hospitalization, Disabling)
  Sender: FDA-Public Use
  Company Number: 200411722GDS

PATIENT
  Age: 2 Month
  Sex: Male

DRUGS (2)
  1. ASPIRINA INFANTIL (ACETYLSALICYLIC ACID) [Suspect]
     Indication: NASOPHARYNGITIS
     Dosage: ORAL
     Route: 048
     Dates: start: 19820821
  2. AMOXICILLIN [Concomitant]

REACTIONS (21)
  - ALANINE AMINOTRANSFERASE INCREASED [None]
  - AMMONIA INCREASED [None]
  - ASPARTATE AMINOTRANSFERASE INCREASED [None]
  - BLOOD ALKALINE PHOSPHATASE INCREASED [None]
  - CEREBRAL VENTRICLE DILATATION [None]
  - CONVULSION [None]
  - DIABETES INSIPIDUS [None]
  - FLAT AFFECT [None]
  - FONTANELLE DEPRESSED [None]
  - GENERAL PHYSICAL HEALTH DETERIORATION [None]
  - HAEMATEMESIS [None]
  - HEPATOMEGALY [None]
  - HYPERREFLEXIA [None]
  - HYPOGLYCAEMIA [None]
  - HYPOTONIA [None]
  - MOANING [None]
  - PALLOR [None]
  - RENAL MASS [None]
  - REYE'S SYNDROME [None]
  - TACHYCARDIA [None]
  - TACHYPNOEA [None]
